FAERS Safety Report 24318271 (Version 3)
Quarter: 2025Q2

REPORT INFORMATION
  Report Type: Report from Study
  Country: US (occurrence: US)
  Receive Date: 20240913
  Receipt Date: 20250519
  Transmission Date: 20250716
  Serious: No
  Sender: SUNOVION
  Company Number: US-SUMITOMO PHARMA SWITZERLAND GMBH-2024SPA001647

PATIENT

DRUGS (3)
  1. ORGOVYX [Suspect]
     Active Substance: RELUGOLIX
     Indication: Prostate cancer
     Dosage: 360 MG, SINGLE (ONE TIME DOSE)
     Route: 048
     Dates: start: 20220203, end: 20220203
  2. ORGOVYX [Suspect]
     Active Substance: RELUGOLIX
     Dosage: 120 MG, QD
     Route: 048
     Dates: start: 20220204
  3. XTANDI [Concomitant]
     Active Substance: ENZALUTAMIDE
     Route: 065

REACTIONS (9)
  - Skin tightness [Not Recovered/Not Resolved]
  - Dyspepsia [Unknown]
  - Flatulence [Unknown]
  - Abdominal distension [Unknown]
  - Skin wrinkling [Not Recovered/Not Resolved]
  - Dry skin [Unknown]
  - Alopecia [Not Recovered/Not Resolved]
  - Gynaecomastia [Unknown]
  - Diarrhoea [Unknown]
